FAERS Safety Report 26126789 (Version 1)
Quarter: 2025Q4

REPORT INFORMATION
  Report Type: Spontaneous
  Country: US (occurrence: None)
  Receive Date: 20251205
  Receipt Date: 20251205
  Transmission Date: 20260117
  Serious: Yes (Hospitalization)
  Sender: FDA-CTU
  Company Number: None

PATIENT
  Age: 67 Year
  Sex: Female
  Weight: 73.35 kg

DRUGS (1)
  1. INFLECTRA [Suspect]
     Active Substance: INFLIXIMAB-DYYB
     Indication: Colitis ulcerative
     Dosage: OTHER FREQUENCY : EVERY 8 WEEKS;
     Route: 041
     Dates: start: 20251205, end: 20251205

REACTIONS (5)
  - Infusion related reaction [None]
  - Rash [None]
  - Urticaria [None]
  - Erythema [None]
  - Eye swelling [None]

NARRATIVE: CASE EVENT DATE: 20251205
